FAERS Safety Report 19402805 (Version 1)
Quarter: 2021Q2

REPORT INFORMATION
  Report Type: Spontaneous
  Country: US (occurrence: US)
  Receive Date: 20210610
  Receipt Date: 20210610
  Transmission Date: 20210717
  Serious: Yes (Other)
  Sender: FDA-Public Use
  Company Number: US-TEVA-2021-US-1920153

PATIENT
  Age: 55 Year
  Sex: Female

DRUGS (2)
  1. PREDNISONE. [Concomitant]
     Active Substance: PREDNISONE
     Indication: LICHEN PLANUS
     Dosage: 15 MILLIGRAM DAILY;
     Route: 065
  2. MYCOPHENOLATE MOFETIL. [Suspect]
     Active Substance: MYCOPHENOLATE MOFETIL
     Indication: LICHEN PLANUS
     Dosage: 2500 MILLIGRAM DAILY; MAXIMUM DOSE
     Route: 065

REACTIONS (3)
  - Abdominal discomfort [Unknown]
  - Herpes simplex [Unknown]
  - Lichen planus [Unknown]
